FAERS Safety Report 4730072-6 (Version None)
Quarter: 2005Q3

REPORT INFORMATION
  Report Type: 
  Country: None (occurrence: None)
  Receive Date: 20050728
  Receipt Date: 20050719
  Transmission Date: 20060218
  Serious: Yes (Other)
  Sender: FDA-Public Use
  Company Number: 2005-07-1255

PATIENT
  Age: 35 Year
  Sex: Male

DRUGS (2)
  1. LORATADINE [Suspect]
     Indication: SEASONAL ALLERGY
     Dosage: 10 MG QD ORAL
     Route: 048
     Dates: start: 20050626, end: 20050627
  2. KENALOG [Concomitant]

REACTIONS (2)
  - TACHYCARDIA [None]
  - WHEEZING [None]
